FAERS Safety Report 4640004-7 (Version None)
Quarter: 2005Q2

REPORT INFORMATION
  Report Type: 
  Country: None (occurrence: None)
  Receive Date: 20050418
  Receipt Date: 20050405
  Transmission Date: 20051028
  Serious: Yes (Hospitalization)
  Sender: FDA-Public Use
  Company Number: 2005055580

PATIENT
  Sex: Female

DRUGS (1)
  1. XANAX [Suspect]
     Indication: ANXIETY
     Dosage: 4 MG (1 MG, 4 IN 1 D),

REACTIONS (18)
  - ADVERSE EVENT [None]
  - ANXIETY [None]
  - BIPOLAR DISORDER [None]
  - CHONDROPATHY [None]
  - CONVULSION [None]
  - DELUSION [None]
  - FALL [None]
  - FEELING HOT AND COLD [None]
  - HYPERHIDROSIS [None]
  - INSOMNIA [None]
  - OBSESSIVE-COMPULSIVE DISORDER [None]
  - PANIC ATTACK [None]
  - PHARMACEUTICAL PRODUCT COMPLAINT [None]
  - PYREXIA [None]
  - ROTATOR CUFF SYNDROME [None]
  - SEPSIS [None]
  - TIBIA FRACTURE [None]
  - TREMOR [None]
